FAERS Safety Report 26218149 (Version 1)
Quarter: 2025Q4

REPORT INFORMATION
  Report Type: Spontaneous
  Country: US (occurrence: US)
  Receive Date: 20251231
  Receipt Date: 20251231
  Transmission Date: 20260117
  Serious: Yes (Other)
  Sender: RANBAXY
  Company Number: US-SUN PHARMACEUTICAL INDUSTRIES INC-2025R1-544154

PATIENT
  Age: 43 Year
  Sex: Female

DRUGS (2)
  1. HYDROCHLOROTHIAZIDE [Suspect]
     Active Substance: HYDROCHLOROTHIAZIDE
     Indication: Familial periodic paralysis
     Dosage: UNK
     Route: 065
  2. EPHEDRINE [Suspect]
     Active Substance: EPHEDRINE
     Indication: Influenza like illness
     Dosage: UNK
     Route: 065

REACTIONS (1)
  - Hypokalaemia [Recovering/Resolving]
